FAERS Safety Report 24583731 (Version 1)
Quarter: 2024Q4

REPORT INFORMATION
  Report Type: Spontaneous
  Country: FR (occurrence: FR)
  Receive Date: 20241106
  Receipt Date: 20241106
  Transmission Date: 20250115
  Serious: Yes (Hospitalization)
  Sender: AUROBINDO
  Company Number: FR-AFSSAPS-BX2024002006

PATIENT
  Age: 53 Year
  Sex: Female
  Weight: 76 kg

DRUGS (8)
  1. DULOXETINE [Suspect]
     Active Substance: DULOXETINE
     Indication: Bipolar disorder
     Dosage: 60 MILLIGRAM, ONCE A DAY
     Route: 048
     Dates: end: 20240919
  2. IRBESARTAN [Suspect]
     Active Substance: IRBESARTAN
     Indication: Product used for unknown indication
     Dosage: 150 MILLIGRAM, ONCE A DAY
     Route: 048
     Dates: end: 20240919
  3. METFORMIN [Suspect]
     Active Substance: METFORMIN HYDROCHLORIDE
     Indication: Diabetes mellitus
     Dosage: 1000 MILLIGRAM, ONCE A DAY
     Route: 048
     Dates: end: 20240919
  4. MIRTAZAPINE [Suspect]
     Active Substance: MIRTAZAPINE
     Indication: Bipolar disorder
     Dosage: 30 MILLIGRAM, ONCE A DAY (15 MG IN MORNING, 15 MG IN EVENING)
     Route: 048
     Dates: end: 20240919
  5. QUETIAPINE [Suspect]
     Active Substance: QUETIAPINE
     Indication: Bipolar disorder
     Dosage: 300 MILLIGRAM, ONCE A DAY
     Route: 048
     Dates: end: 20240919
  6. SITAGLIPTIN [Suspect]
     Active Substance: SITAGLIPTIN
     Indication: Diabetes mellitus
     Dosage: 100 MILLIGRAM, ONCE A DAY
     Route: 048
     Dates: end: 20240919
  7. LEVOMEPROMAZINE [Suspect]
     Active Substance: LEVOMEPROMAZINE
     Indication: Bipolar disorder
     Dosage: 100 MILLIGRAM, ONCE A DAY (25 MG 4 TIMES A DAY)
     Route: 048
     Dates: end: 20240919
  8. OXAZEPAM [Suspect]
     Active Substance: OXAZEPAM
     Indication: Bipolar disorder
     Dosage: 200 MILLIGRAM, ONCE A DAY
     Route: 048
     Dates: end: 20240919

REACTIONS (2)
  - Extrapyramidal disorder [Recovered/Resolved]
  - Disorientation [Recovered/Resolved]

NARRATIVE: CASE EVENT DATE: 20240919
